FAERS Safety Report 21157211 (Version 7)
Quarter: 2022Q4

REPORT INFORMATION
  Report Type: Report from Study
  Country: US (occurrence: None)
  Receive Date: 20220801
  Receipt Date: 20221213
  Transmission Date: 20230112
  Serious: Yes (Hospitalization)
  Sender: FDA-Public Use
  Company Number: US-Eisai Medical Research-EC-2022-120279

PATIENT
  Age: 81 Year
  Sex: Female
  Weight: 56.2 kg

DRUGS (12)
  1. LENVATINIB [Suspect]
     Active Substance: LENVATINIB
     Indication: Clear cell renal cell carcinoma
     Route: 048
     Dates: start: 20220720, end: 20220724
  2. LENVATINIB [Suspect]
     Active Substance: LENVATINIB
     Dosage: STARTING DOSE AT 14MG (FLUCTUATED DOSAGE)
     Route: 048
     Dates: start: 20220728
  3. QUAVONLIMAB [Suspect]
     Active Substance: QUAVONLIMAB
     Indication: Clear cell renal cell carcinoma
     Dosage: MK-1308 25MG + PEMBROLIZUMAB 400MG
     Route: 041
     Dates: start: 20220720, end: 20220720
  4. PEMBROLIZUMAB [Suspect]
     Active Substance: PEMBROLIZUMAB
     Dosage: MK-1308 25MG + PEMBROLIZUMAB 400MG
     Route: 041
     Dates: start: 20220901
  5. ASCORBIC ACID [Concomitant]
     Active Substance: ASCORBIC ACID
     Dates: start: 20220615
  6. ASPIRIN [Concomitant]
     Active Substance: ASPIRIN
     Dates: start: 20171106, end: 20220928
  7. CLOBETASOL [Concomitant]
     Active Substance: CLOBETASOL
     Route: 061
     Dates: start: 20220524, end: 20220928
  8. FLUTICASONE PROPIONATE [Concomitant]
     Active Substance: FLUTICASONE PROPIONATE
     Dates: start: 20210317, end: 20220928
  9. KETOCONAZOLE [Concomitant]
     Active Substance: KETOCONAZOLE
     Route: 061
     Dates: start: 20220524
  10. PSYLLIUM HUSKS [Concomitant]
     Active Substance: PSYLLIUM HUSK
     Dates: start: 20180413, end: 20220812
  11. VITAMINS NOS [Concomitant]
     Active Substance: VITAMINS
     Dates: start: 20180102, end: 20220928
  12. TACROLIMUS [Concomitant]
     Active Substance: TACROLIMUS
     Dates: start: 20220524, end: 20220921

REACTIONS (1)
  - Headache [Recovered/Resolved]

NARRATIVE: CASE EVENT DATE: 20220720
